FAERS Safety Report 6640117-4 (Version None)
Quarter: 2010Q1

REPORT INFORMATION
  Report Type: 
  Country: None (occurrence: None)
  Receive Date: 20100318
  Receipt Date: 20100305
  Transmission Date: 20100710
  Serious: Yes (Other)
  Sender: FDA-Public Use
  Company Number: US-ELI_LILLY_AND_COMPANY-US201003002138

PATIENT
  Age: 14 Year
  Sex: Male

DRUGS (1)
  1. SYMBYAX [Suspect]
     Dosage: UNK D/F, UNK
     Dates: start: 20090101

REACTIONS (1)
  - WEIGHT INCREASED [None]
